FAERS Safety Report 4751403-7 (Version None)
Quarter: 2005Q3

REPORT INFORMATION
  Report Type: 
  Country: None (occurrence: None)
  Receive Date: 20050822
  Receipt Date: 20050817
  Transmission Date: 20060218
  Serious: Yes (Death, Hospitalization, Other)
  Sender: FDA-Public Use
  Company Number: USA-2005-0020926

PATIENT
  Age: 2 Year
  Sex: Female

DRUGS (1)
  1. OXYCODONE HCL [Suspect]

REACTIONS (20)
  - ABDOMINAL PAIN [None]
  - ACCIDENTAL DRUG INTAKE BY CHILD [None]
  - ANAEMIA [None]
  - ANORECTAL DISORDER [None]
  - BRAIN OEDEMA [None]
  - BRONCHITIS ACUTE [None]
  - BRONCHOPNEUMONIA [None]
  - CARDIO-RESPIRATORY ARREST [None]
  - CARDIOMEGALY [None]
  - CHILD ABUSE [None]
  - DEPRESSED LEVEL OF CONSCIOUSNESS [None]
  - EXCORIATION [None]
  - FATIGUE [None]
  - GAIT DISTURBANCE [None]
  - GENERAL SYMPTOM [None]
  - LOSS OF CONSCIOUSNESS [None]
  - OVERDOSE [None]
  - PRURITUS [None]
  - RESPIRATORY DEPRESSION [None]
  - VICTIM OF HOMICIDE [None]
